FAERS Safety Report 4614580-4 (Version None)
Quarter: 2005Q2

REPORT INFORMATION
  Report Type: 
  Country: None (occurrence: None)
  Receive Date: 20050307
  Receipt Date: 20041119
  Transmission Date: 20051028
  Serious: Yes (Other)
  Sender: FDA-Public Use
  Company Number: USA041183795

PATIENT
  Sex: Male

DRUGS (4)
  1. ALIMTA [Suspect]
     Indication: BLADDER CANCER
     Dates: start: 20041020, end: 20041118
  2. VITAMIN B-12 [Concomitant]
  3. FOLIC ACID [Concomitant]
  4. BACLOFEN [Concomitant]

REACTIONS (9)
  - ALANINE AMINOTRANSFERASE INCREASED [None]
  - ANOREXIA [None]
  - ASPARTATE AMINOTRANSFERASE INCREASED [None]
  - BLOOD ALBUMIN DECREASED [None]
  - CHILLS [None]
  - COUGH [None]
  - FEELING ABNORMAL [None]
  - HICCUPS [None]
  - NEUTROPENIA [None]
